FAERS Safety Report 4699802-6 (Version None)
Quarter: 2005Q2

REPORT INFORMATION
  Report Type: 
  Country: None (occurrence: None)
  Receive Date: 20050623
  Receipt Date: 20050614
  Transmission Date: 20051028
  Serious: Yes (Hospitalization, Other)
  Sender: FDA-Public Use
  Company Number: 2003119654

PATIENT
  Age: 72 Year
  Sex: Female
  Weight: 90.7194 kg

DRUGS (25)
  1. LIPITOR [Suspect]
     Indication: BLOOD CHOLESTEROL
     Dosage: 10 MG, ORAL
     Route: 048
     Dates: start: 20030901, end: 20040327
  2. ZOLOFT [Suspect]
     Indication: FIBROMYALGIA
     Dosage: 50 MG (1 IN 1 D),ORAL
     Route: 048
     Dates: start: 20040101
  3. CELEBREX [Suspect]
     Indication: FIBROMYALGIA
  4. ZETIA [Suspect]
     Indication: ILL-DEFINED DISORDER
  5. LIDOCAINE [Suspect]
     Indication: ENDODONTIC PROCEDURE
     Dates: start: 20050330
  6. WARFARIN SODIUM [Suspect]
     Indication: ILL-DEFINED DISORDER
  7. TYLENOL EXTENDED RELIEF (PARACETAMOL) [Concomitant]
  8. TENORMIN [Concomitant]
  9. CARDIZEM CD [Concomitant]
  10. HYDROCHLOROTHIAZIDE/TRIAMTERENE (HYDROCHLOROTHIAZIDE TRIAMTERENE) [Concomitant]
  11. CLONOPIN (CLONAZEPAM) [Concomitant]
  12. VITAMINS (VITAMINS) [Concomitant]
  13. CALCIUM (CALCIUM) [Concomitant]
  14. VITAMIN E [Concomitant]
  15. FLONASE [Concomitant]
  16. CLARITIN [Concomitant]
  17. TYLENOL [Concomitant]
  18. IBUPROFEN [Concomitant]
  19. ACETYLSALICYLIC ACID SRT [Concomitant]
  20. ALL OTHER THERAPEUTIC PRODUCTS (ALL OTHER THERAPEUTIC PRODUCTS) [Concomitant]
  21. ZINC (ZINC) [Concomitant]
  22. OTHER ANTIHYPERTENSIVES (OTHER ANTIHYPERTENSIVES) [Concomitant]
  23. DRUG, UNSPECIFIED (DRUG, UNSPECIFIED) [Concomitant]
  24. COUMADIN [Concomitant]
  25. ALLEGRA [Concomitant]

REACTIONS (36)
  - ACTIVITIES OF DAILY LIVING IMPAIRED [None]
  - ADVERSE DRUG REACTION [None]
  - AGITATION [None]
  - ANXIETY [None]
  - ASTHENIA [None]
  - ATRIAL FIBRILLATION [None]
  - BALANCE DISORDER [None]
  - BLOOD CHOLESTEROL INCREASED [None]
  - BRONCHITIS [None]
  - CONDITION AGGRAVATED [None]
  - CONTUSION [None]
  - CRYING [None]
  - DIZZINESS [None]
  - DRUG EFFECT DECREASED [None]
  - DRUG INEFFECTIVE [None]
  - DRUG INTOLERANCE [None]
  - DYSPNOEA [None]
  - ENDODONTIC PROCEDURE [None]
  - ENZYME ABNORMALITY [None]
  - FEELING ABNORMAL [None]
  - GASTROINTESTINAL DISORDER [None]
  - HERNIA REPAIR [None]
  - HYPERSENSITIVITY [None]
  - LOGORRHOEA [None]
  - MUSCLE DISORDER [None]
  - MUSCLE SWELLING [None]
  - ORAL SURGERY [None]
  - PROCEDURAL COMPLICATION [None]
  - PULMONARY OEDEMA [None]
  - SENSORY DISTURBANCE [None]
  - SERUM SEROTONIN DECREASED [None]
  - SLEEP DISORDER [None]
  - SPEECH DISORDER [None]
  - THERMAL BURN [None]
  - TREMOR [None]
  - WEIGHT FLUCTUATION [None]
